FAERS Safety Report 19116498 (Version 3)
Quarter: 2021Q3

REPORT INFORMATION
  Report Type: Spontaneous
  Country: NL (occurrence: NL)
  Receive Date: 20210409
  Receipt Date: 20210810
  Transmission Date: 20211014
  Serious: Yes (Other)
  Sender: FDA-Public Use
  Company Number: NL-ALIMERA SCIENCES INC.-NL-A16013-21-000056

PATIENT

DRUGS (1)
  1. ILUVIEN [Suspect]
     Active Substance: FLUOCINOLONE ACETONIDE
     Indication: DIABETIC RETINAL OEDEMA
     Dosage: 0.25 MICROGRAM, QD? UNKNOWN EYE
     Route: 031

REACTIONS (2)
  - Corneal degeneration [Recovering/Resolving]
  - Device dislocation [Recovered/Resolved]
